FAERS Safety Report 8262810-2 (Version None)
Quarter: 2012Q1

REPORT INFORMATION
  Report Type: 
  Country: None (occurrence: None)
  Receive Date: 20120327
  Receipt Date: 20081124
  Transmission Date: 20120608
  Serious: Yes (Other)
  Sender: FDA-Public Use
  Company Number: PHEH2008US10565

PATIENT
  Age: 70 Year
  Sex: Female
  Weight: 64.4 kg

DRUGS (2)
  1. GLEEVEC [Suspect]
     Indication: CHRONIC MYELOID LEUKAEMIA
     Dosage: 400 MG, QD, ORAL
     Route: 048
     Dates: start: 20080204, end: 20080414
  2. HYDREA [Concomitant]

REACTIONS (4)
  - OEDEMA PERIPHERAL [None]
  - INTERSTITIAL LUNG DISEASE [None]
  - COUGH [None]
  - LUNG INFILTRATION [None]
